FAERS Safety Report 18406871 (Version 2)
Quarter: 2021Q1

REPORT INFORMATION
  Report Type: Spontaneous
  Country: IL (occurrence: IL)
  Receive Date: 20201020
  Receipt Date: 20210119
  Transmission Date: 20210419
  Serious: Yes (Other)
  Sender: FDA-Public Use
  Company Number: IL-ELI_LILLY_AND_COMPANY-IL202010004770

PATIENT
  Age: 53 Year
  Sex: Female

DRUGS (3)
  1. HERCEPTIN [Concomitant]
     Active Substance: TRASTUZUMAB
     Indication: HER2 POSITIVE BREAST CANCER
     Dosage: UNK, UNKNOWN
     Route: 065
  2. VERZENIO [Suspect]
     Active Substance: ABEMACICLIB
     Indication: HER2 POSITIVE BREAST CANCER
     Dosage: 150 MG, BID
     Route: 065
  3. FASLODEX [Concomitant]
     Active Substance: FULVESTRANT
     Indication: HER2 POSITIVE BREAST CANCER
     Dosage: UNK, UNKNOWN
     Route: 065

REACTIONS (4)
  - Hepatic enzyme increased [Recovered/Resolved]
  - Off label use [Unknown]
  - Haemoglobin decreased [Unknown]
  - Vomiting [Unknown]
